FAERS Safety Report 10619022 (Version 2)
Quarter: 2016Q2

REPORT INFORMATION
  Report Type: Report from Study
  Country: TR (occurrence: TR)
  Receive Date: 20141202
  Receipt Date: 20160503
  Transmission Date: 20160815
  Serious: Yes (Other)
  Sender: FDA-Public Use
  Company Number: TR-BAYER-2014-173526

PATIENT
  Age: 40 Year
  Sex: Female

DRUGS (1)
  1. BETAFERON [Suspect]
     Active Substance: INTERFERON BETA-1B
     Indication: MULTIPLE SCLEROSIS
     Dosage: 8 MIU, DAILY DOSE
     Route: 058
     Dates: start: 20010110

REACTIONS (5)
  - Exposure during pregnancy [None]
  - Skin necrosis [Recovering/Resolving]
  - Wound [None]
  - Skin discolouration [None]
  - Weight decreased [None]

NARRATIVE: CASE EVENT DATE: 20141002
